FAERS Safety Report 6210083-4 (Version None)
Quarter: 2009Q2

REPORT INFORMATION
  Report Type: 
  Country: None (occurrence: None)
  Receive Date: 20090529
  Receipt Date: 20090529
  Transmission Date: 20091009
  Serious: Yes (Hospitalization)
  Sender: FDA-Public Use
  Company Number: None

PATIENT
  Age: 19 Year
  Sex: Female
  Weight: 54 kg

DRUGS (1)
  1. BLEOMYCIN SULFATE [Suspect]
     Indication: HODGKIN'S DISEASE
     Dosage: 2 UNITS ONCE IV
     Route: 042
     Dates: start: 20090522, end: 20090522

REACTIONS (3)
  - ANAPHYLACTIC REACTION [None]
  - ANGIOEDEMA [None]
  - BACK PAIN [None]
